FAERS Safety Report 24787943 (Version 1)
Quarter: 2024Q4

REPORT INFORMATION
  Report Type: Spontaneous
  Country: CN (occurrence: CN)
  Receive Date: 20241230
  Receipt Date: 20241230
  Transmission Date: 20250114
  Serious: No
  Sender: ALKEM
  Company Number: None

PATIENT
  Age: 39 Year
  Sex: Female

DRUGS (13)
  1. TACROLIMUS [Interacting]
     Active Substance: TACROLIMUS
     Indication: Myasthenia gravis
     Dosage: 1 MILLIGRAM, BID
     Route: 065
  2. TACROLIMUS [Interacting]
     Active Substance: TACROLIMUS
     Dosage: UNK (INCREASED DOSE)
     Route: 065
  3. TACROLIMUS [Interacting]
     Active Substance: TACROLIMUS
     Dosage: 6 MILLIGRAM, QD
     Route: 065
  4. TACROLIMUS [Interacting]
     Active Substance: TACROLIMUS
     Dosage: 1 MILLIGRAM, BID (RESTARTED DOSE)
     Route: 065
  5. TACROLIMUS [Interacting]
     Active Substance: TACROLIMUS
     Dosage: 1.5 MILLIGRAM, BID
     Route: 065
  6. TACROLIMUS [Interacting]
     Active Substance: TACROLIMUS
     Dosage: 2 MILLIGRAM, BID
     Route: 065
  7. TACROLIMUS [Interacting]
     Active Substance: TACROLIMUS
     Dosage: 1 MILLIGRAM, BID (REDUCED DOSE)
     Route: 065
  8. TACROLIMUS [Interacting]
     Active Substance: TACROLIMUS
     Dosage: 3 MILLIGRAM, BID
     Route: 065
     Dates: end: 20221224
  9. NIRMATRELVIR [Interacting]
     Active Substance: NIRMATRELVIR
     Indication: COVID-19
     Dosage: 300 MILLIGRAM, BID (EVERY 12 HOURS)
     Route: 065
  10. RITONAVIR [Interacting]
     Active Substance: RITONAVIR
     Indication: COVID-19
     Dosage: 100 MILLIGRAM, BID (EVERY 12 HOURS)
     Route: 065
  11. Ethinylestradiol/ Levonorges Trel [Concomitant]
     Indication: Polycystic ovarian syndrome
     Dosage: UNK
     Route: 065
  12. FLUDROCORTISONE [Concomitant]
     Active Substance: FLUDROCORTISONE
     Indication: Polycystic ovarian syndrome
     Dosage: UNK
     Route: 065
  13. PYRIDOSTIGMINE BROMIDE [Concomitant]
     Active Substance: PYRIDOSTIGMINE BROMIDE
     Indication: Product used for unknown indication
     Dosage: 60 MILLIGRAM, TID (EVERY 8 HOURS)
     Route: 065

REACTIONS (5)
  - Immunosuppressant drug level increased [Recovered/Resolved]
  - Drug interaction [Unknown]
  - COVID-19 [Unknown]
  - Alanine aminotransferase increased [Unknown]
  - Aspartate aminotransferase increased [Unknown]

NARRATIVE: CASE EVENT DATE: 20221201
